FAERS Safety Report 16227073 (Version 2)
Quarter: 2019Q2

REPORT INFORMATION
  Report Type: Spontaneous
  Country: US (occurrence: US)
  Receive Date: 20190423
  Receipt Date: 20190423
  Transmission Date: 20190711
  Serious: Yes (Hospitalization)
  Sender: FDA-Public Use
  Company Number: US-APOTEX-2019AP012314

PATIENT
  Sex: Female

DRUGS (1)
  1. FLECAINIDE [Suspect]
     Active Substance: FLECAINIDE
     Indication: SUPRAVENTRICULAR TACHYCARDIA
     Dosage: 96 MG/M2, UNK (PER DAY)
     Route: 048

REACTIONS (2)
  - Condition aggravated [Recovered/Resolved]
  - Ventricular dysfunction [Recovered/Resolved]
